FAERS Safety Report 6615388-0 (Version None)
Quarter: 2010Q1

REPORT INFORMATION
  Report Type: 
  Country: None (occurrence: None)
  Receive Date: 20100305
  Receipt Date: 20091005
  Transmission Date: 20100710
  Serious: No
  Sender: FDA-Public Use
  Company Number: A0810397A

PATIENT
  Sex: Male

DRUGS (2)
  1. REQUIP [Suspect]
     Indication: RESTLESS LEGS SYNDROME
     Route: 048
     Dates: start: 20051208
  2. AZILECT [Concomitant]

REACTIONS (2)
  - EXCESSIVE SEXUAL FANTASIES [None]
  - PARAPHILIA [None]
